FAERS Safety Report 8415310-0 (Version None)
Quarter: 2012Q2

REPORT INFORMATION
  Report Type: 
  Country: None (occurrence: None)
  Receive Date: 20120606
  Receipt Date: 20120524
  Transmission Date: 20120825
  Serious: No
  Sender: FDA-Public Use
  Company Number: US-ASTRAZENECA-2012SE31687

PATIENT
  Age: 54 Year
  Sex: Female
  Weight: 128.8 kg

DRUGS (9)
  1. TRIAMTERENE [Concomitant]
  2. MOVEFREE [Concomitant]
  3. HYDROCHLOROTHIAZIDE [Concomitant]
  4. MULTI-VITAMINS [Concomitant]
  5. COQ10 [Concomitant]
  6. PRILOSEC OTC [Suspect]
     Indication: GASTROOESOPHAGEAL REFLUX DISEASE
     Route: 048
  7. NEXIUM [Suspect]
     Indication: GASTROOESOPHAGEAL REFLUX DISEASE
     Route: 048
  8. HYDROCHLOROTHIAZIDE [Concomitant]
  9. CALCIUM [Concomitant]

REACTIONS (5)
  - BURNING SENSATION [None]
  - ERUCTATION [None]
  - INTENTIONAL DRUG MISUSE [None]
  - CONDITION AGGRAVATED [None]
  - DRUG EFFECT DECREASED [None]
